FAERS Safety Report 8124682 (Version 2)
Quarter: 2014Q4

REPORT INFORMATION
  Report Type: Spontaneous
  Country: US (occurrence: US)
  Receive Date: 20110907
  Receipt Date: 20141203
  Transmission Date: 20150529
  Serious: Yes (Death, Other)
  Sender: FDA-Public Use
  Company Number: US-TYCO HEALTHCARE/MALLINCKRODT-T201101444

PATIENT
  Age: 59 Year
  Sex: Male
  Weight: 180.95 kg

DRUGS (8)
  1. OXYCODONE [Concomitant]
     Active Substance: OXYCODONE
     Indication: BREAKTHROUGH PAIN
     Dosage: 15-22 MG QD AS NEEDED
     Route: 048
  2. EXALGO [Suspect]
     Active Substance: HYDROMORPHONE HYDROCHLORIDE
     Indication: TRIGEMINAL NEURALGIA
     Dosage: 1 - 12 MG TABLET DAILY
     Route: 048
     Dates: start: 201102
  3. TIAZAC [Concomitant]
     Active Substance: DILTIAZEM HYDROCHLORIDE
     Indication: HYPERTENSION
     Dosage: 360 MG AT NIGHT
     Route: 048
  4. EXALGO [Suspect]
     Active Substance: HYDROMORPHONE HYDROCHLORIDE
     Indication: PAIN
     Dosage: 1 - 16 MG TABLET AND 1 - 8 MG TABLET DAILY, 24 MG TOTAL
     Dates: start: 20110713
  5. LORAZEPAM. [Concomitant]
     Active Substance: LORAZEPAM
     Indication: ANXIETY
     Dosage: 0.5 MG BID
     Route: 048
  6. DILAUDID [Concomitant]
     Active Substance: HYDROMORPHONE HYDROCHLORIDE
     Dosage: 8 MG Q6-8 HRS
  7. EXALGO [Suspect]
     Active Substance: HYDROMORPHONE HYDROCHLORIDE
     Dosage: 1 - 16 MG TABLET DAILY
     Dates: start: 2011
  8. SERZONE [Concomitant]
     Active Substance: NEFAZODONE HYDROCHLORIDE
     Indication: DEPRESSION
     Dosage: 450 MG AT NIGHT
     Route: 048

REACTIONS (18)
  - Hypersomnia [Recovered/Resolved]
  - Impaired driving ability [Not Recovered/Not Resolved]
  - Disturbance in attention [Recovering/Resolving]
  - Drug effect decreased [Not Recovered/Not Resolved]
  - Seizure [Unknown]
  - Hypoaesthesia oral [Recovered/Resolved]
  - Dizziness [Recovering/Resolving]
  - Apnoea [Recovering/Resolving]
  - Palpitations [Recovered/Resolved]
  - Sleep disorder [Recovering/Resolving]
  - Coordination abnormal [Recovering/Resolving]
  - Feeling abnormal [Recovering/Resolving]
  - Thermal burn [Unknown]
  - Gait disturbance [Recovered/Resolved]
  - Dysarthria [Recovering/Resolving]
  - Fall [Recovered/Resolved]
  - Confusional state [Recovering/Resolving]
  - Drug ineffective [Recovered/Resolved]

NARRATIVE: CASE EVENT DATE: 201102
